FAERS Safety Report 13589545 (Version 1)
Quarter: 2017Q2

REPORT INFORMATION
  Report Type: Spontaneous
  Country: FR (occurrence: FR)
  Receive Date: 20170529
  Receipt Date: 20170529
  Transmission Date: 20170830
  Serious: Yes (Hospitalization)
  Sender: FDA-Public Use
  Company Number: FR-ACCORD-051898

PATIENT
  Age: 71 Year
  Sex: Female

DRUGS (9)
  1. CRESTOR [Concomitant]
     Active Substance: ROSUVASTATIN CALCIUM
  2. PYOSTACINE [Concomitant]
     Active Substance: PRISTINAMYCIN
  3. RAMIPRIL. [Concomitant]
     Active Substance: RAMIPRIL
  4. FUNGIZONE [Concomitant]
     Active Substance: AMPHOTERICIN B
  5. FLUOROURACIL ACCORD [Suspect]
     Active Substance: FLUOROURACIL
     Indication: BREAST CANCER
     Route: 042
     Dates: start: 20170412
  6. EPIRUBICIN MYLAN [Suspect]
     Active Substance: EPIRUBICIN
     Indication: BREAST CANCER
     Dosage: STRENGTH: 2 MG/ML
     Route: 042
     Dates: start: 20170412
  7. METFORMIN [Concomitant]
     Active Substance: METFORMIN HYDROCHLORIDE
  8. ENDOXAN [Suspect]
     Active Substance: CYCLOPHOSPHAMIDE
     Indication: BREAST CANCER
     Route: 042
     Dates: start: 20170412
  9. NOVONORM [Concomitant]
     Active Substance: REPAGLINIDE

REACTIONS (2)
  - Thrombocytopenia [Recovering/Resolving]
  - Renal failure [Recovering/Resolving]

NARRATIVE: CASE EVENT DATE: 20170424
